FAERS Safety Report 9239187 (Version 1)
Quarter: 2013Q2

REPORT INFORMATION
  Report Type: Spontaneous
  Country: US (occurrence: US)
  Receive Date: 20130418
  Receipt Date: 20130418
  Transmission Date: 20140414
  Serious: No
  Sender: FDA-Public Use
  Company Number: US-MYLANLABS-2012S1013345

PATIENT
  Sex: Female

DRUGS (2)
  1. VERAPAMIL HCL EXTENDED RELEASE TABLETS, USP [Suspect]
  2. VERAPAMIL HCL EXTENDED RELEASE TABLETS, USP [Suspect]

REACTIONS (5)
  - Muscular weakness [Not Recovered/Not Resolved]
  - Heart rate increased [Not Recovered/Not Resolved]
  - Dizziness [Not Recovered/Not Resolved]
  - Insomnia [Not Recovered/Not Resolved]
  - Tremor [Not Recovered/Not Resolved]
